FAERS Safety Report 8291374-2 (Version None)
Quarter: 2012Q2

REPORT INFORMATION
  Report Type: 
  Country: None (occurrence: None)
  Receive Date: 20120417
  Receipt Date: 20120410
  Transmission Date: 20120825
  Serious: Yes (Other)
  Sender: FDA-Public Use
  Company Number: US-GLAXOSMITHKLINE-A0973026A

PATIENT
  Age: 46 Year
  Sex: Male

DRUGS (2)
  1. EPIVIR-HBV [Suspect]
     Indication: HEPATITIS B
     Dosage: 100MG PER DAY
     Route: 048
     Dates: start: 20080101
  2. LISINOPRIL [Concomitant]

REACTIONS (4)
  - CONSTIPATION [None]
  - BACK PAIN [None]
  - HAEMATOCHEZIA [None]
  - HYPOAESTHESIA [None]
